FAERS Safety Report 15762941 (Version 2)
Quarter: 2019Q2

REPORT INFORMATION
  Report Type: Report from Study
  Country: CO (occurrence: CO)
  Receive Date: 20181226
  Receipt Date: 20190416
  Transmission Date: 20190711
  Serious: Yes (Death, Hospitalization, Other)
  Sender: FDA-Public Use
  Company Number: CO-TAKEDA-2018TUS036753

PATIENT
  Age: 58 Year
  Sex: Female
  Weight: 57 kg

DRUGS (11)
  1. BISACODILO [Concomitant]
     Indication: ADVERSE DRUG REACTION
     Dosage: 5 MILLIGRAM, QD
     Route: 048
     Dates: start: 2018, end: 20190414
  2. PONATINIB [Suspect]
     Active Substance: PONATINIB
     Indication: CHRONIC MYELOID LEUKAEMIA
     Dosage: 45 MILLIGRAM, QD
     Route: 048
     Dates: start: 20180525, end: 20180622
  3. PONATINIB [Suspect]
     Active Substance: PONATINIB
     Dosage: 45 MILLIGRAM, QD
     Route: 048
     Dates: start: 20190313, end: 20190414
  4. OXYCODONE [Concomitant]
     Active Substance: OXYCODONE
     Indication: ADVERSE DRUG REACTION
     Dosage: 10 MILLIGRAM, QD
     Route: 048
     Dates: start: 2018, end: 20190414
  5. AMLODIPINO                         /00972401/ [Concomitant]
     Active Substance: AMLODIPINE BESYLATE
     Indication: MALAISE
     Dosage: 5 MILLIGRAM, QD
     Route: 048
     Dates: start: 2018, end: 20190414
  6. ATORVASTATINE                      /01326101/ [Concomitant]
     Active Substance: ATORVASTATIN
     Indication: MALAISE
  7. OXYCODONE [Concomitant]
     Active Substance: OXYCODONE
     Indication: MALAISE
  8. ATORVASTATINE                      /01326101/ [Concomitant]
     Active Substance: ATORVASTATIN
     Indication: ADVERSE DRUG REACTION
     Dosage: 20 MILLIGRAM
     Route: 048
     Dates: start: 2018, end: 20190414
  9. ALPRAZOLAM. [Concomitant]
     Active Substance: ALPRAZOLAM
     Indication: MALAISE
     Dosage: 0.25 MILLIGRAM, QD
     Route: 048
     Dates: start: 2018, end: 20190414
  10. PONATINIB [Suspect]
     Active Substance: PONATINIB
     Dosage: 45 MILLIGRAM, QD
     Route: 048
     Dates: start: 20180928, end: 20181027
  11. BISACODILO [Concomitant]
     Indication: MALAISE

REACTIONS (1)
  - Chronic myeloid leukaemia recurrent [Fatal]

NARRATIVE: CASE EVENT DATE: 20181027
